FAERS Safety Report 7576553-1 (Version None)
Quarter: 2011Q2

REPORT INFORMATION
  Report Type: 
  Country: None (occurrence: None)
  Receive Date: 20110628
  Receipt Date: 20110609
  Transmission Date: 20111010
  Serious: Yes (Hospitalization, Other)
  Sender: FDA-Public Use
  Company Number: US-BAYER-2011-050364

PATIENT
  Age: 65 Year
  Sex: Male

DRUGS (5)
  1. CIPROFLOXACIN [Suspect]
     Indication: COLITIS
     Dosage: UNK
     Dates: start: 20110301, end: 20110301
  2. LEVOTHYROXINE SODIUM [Concomitant]
     Dosage: 0.2 MG, QD
  3. HUMIRA [Suspect]
     Indication: CROHN'S DISEASE
     Dosage: 40 MG, BID
     Route: 058
     Dates: start: 20101101
  4. FLAGYL [Concomitant]
     Indication: COLITIS
  5. BUDESONIDE [Concomitant]
     Dosage: 9 MG, QD

REACTIONS (6)
  - COLITIS [None]
  - COLONIC OBSTRUCTION [None]
  - ABDOMINAL PAIN [None]
  - CLOSTRIDIUM DIFFICILE COLITIS [None]
  - ILEAL STENOSIS [None]
  - CROHN'S DISEASE [None]
